FAERS Safety Report 5604246-6 (Version None)
Quarter: 2008Q1

REPORT INFORMATION
  Report Type: 
  Country: None (occurrence: None)
  Receive Date: 20080128
  Receipt Date: 20080123
  Transmission Date: 20080703
  Serious: No
  Sender: FDA-Public Use
  Company Number: US-ALLERGAN-0800681US

PATIENT
  Sex: Female

DRUGS (2)
  1. BOTOX COSMETIC [Suspect]
     Indication: SKIN WRINKLING
     Dosage: 24 UNITS, SINGLE
     Route: 030
     Dates: start: 20080110, end: 20080110
  2. CLINDAGEL [Concomitant]
     Indication: DRUG USE FOR UNKNOWN INDICATION
     Route: 061

REACTIONS (5)
  - HYPERSENSITIVITY [None]
  - LYMPHADENOPATHY [None]
  - SKIN TIGHTNESS [None]
  - THROAT TIGHTNESS [None]
  - WRONG TECHNIQUE IN DRUG USAGE PROCESS [None]
